FAERS Safety Report 10802598 (Version 1)
Quarter: 2015Q1

REPORT INFORMATION
  Report Type: Spontaneous
  Country: US (occurrence: US)
  Receive Date: 20150217
  Receipt Date: 20150217
  Transmission Date: 20150721
  Serious: No
  Sender: FDA-Public Use
  Company Number: US-BRACCO-010825

PATIENT
  Age: 29 Year
  Sex: Female

DRUGS (5)
  1. ISOVUE-M [Suspect]
     Active Substance: IOPAMIDOL
     Indication: ARTHROGRAM
     Dosage: 1-2 ML
     Route: 014
     Dates: start: 20140430, end: 20140430
  2. LIDOCAINE. [Concomitant]
     Active Substance: LIDOCAINE
     Indication: ARTHROGRAM
     Dosage: 2%
     Route: 058
     Dates: start: 20140430, end: 20140430
  3. NORMAL SALINE [Concomitant]
     Active Substance: SODIUM CHLORIDE
     Indication: ARTHROGRAM
     Route: 014
     Dates: start: 20140430, end: 20140430
  4. LIDOCAINE. [Concomitant]
     Active Substance: LIDOCAINE
     Indication: ARTHROGRAM
     Route: 030
     Dates: start: 20140430, end: 20140430
  5. MAGNEVIST [Concomitant]
     Active Substance: GADOPENTETATE DIMEGLUMINE
     Indication: ARTHROGRAM
     Route: 014
     Dates: start: 20140430, end: 20140430

REACTIONS (1)
  - Hypoaesthesia oral [Recovered/Resolved]

NARRATIVE: CASE EVENT DATE: 20140430
